FAERS Safety Report 6077542-9 (Version None)
Quarter: 2009Q1

REPORT INFORMATION
  Report Type: 
  Country: None (occurrence: None)
  Receive Date: 20090213
  Receipt Date: 20090205
  Transmission Date: 20090719
  Serious: Yes (Hospitalization)
  Sender: FDA-Public Use
  Company Number: US-JNJFOC-20090202476

PATIENT
  Age: 63 Year
  Sex: Male
  Weight: 70 kg

DRUGS (5)
  1. REMICADE [Suspect]
     Indication: RHEUMATOID ARTHRITIS
     Route: 042
  2. ARAVA [Suspect]
     Route: 048
  3. ARAVA [Suspect]
     Indication: RHEUMATOID ARTHRITIS
     Route: 048
  4. PREDNISONE [Concomitant]
  5. PLAQUENIL [Concomitant]

REACTIONS (1)
  - HISTOPLASMOSIS DISSEMINATED [None]
